FAERS Safety Report 7610427-2 (Version None)
Quarter: 2011Q3

REPORT INFORMATION
  Report Type: 
  Country: None (occurrence: None)
  Receive Date: 20110715
  Receipt Date: 20110711
  Transmission Date: 20111222
  Serious: Yes (Other)
  Sender: FDA-Public Use
  Company Number: US-PFIZER INC-2011138161

PATIENT
  Sex: Male
  Weight: 94 kg

DRUGS (20)
  1. MORPHINE [Concomitant]
     Dosage: UNK
  2. ZOLOFT [Concomitant]
     Dosage: UNK
  3. METHYLPHENIDATE [Concomitant]
     Indication: ANALGESIC THERAPY
     Dosage: UNK
  4. PROTONIX [Concomitant]
     Dosage: UNK
  5. LAMICTAL [Concomitant]
     Dosage: UNK
  6. VITAMIN D [Concomitant]
     Dosage: UNK
  7. LYRICA [Suspect]
     Indication: PAIN
  8. ZYPREXA [Concomitant]
     Dosage: UNK
  9. SOMA [Concomitant]
     Dosage: UNK
  10. IBUPROFEN [Concomitant]
     Dosage: UNK
  11. MULTI-VITAMINS [Concomitant]
     Dosage: UNK
  12. LYRICA [Suspect]
     Indication: FIBROMYALGIA
     Dosage: 150 MG, 3X/DAY
     Route: 048
     Dates: start: 20110526, end: 20110711
  13. DEPO-TESTOSTERONE [Concomitant]
     Dosage: UNK
  14. CLARITIN [Concomitant]
     Dosage: UNK
  15. AMBIEN [Concomitant]
     Dosage: UNK
  16. ENSURE [Concomitant]
     Dosage: UNK
  17. OXYCODONE [Concomitant]
     Dosage: UNK
  18. FLONASE [Concomitant]
     Dosage: UNK
  19. KLONOPIN [Concomitant]
     Dosage: UNK
  20. CALCIUM [Concomitant]
     Dosage: UNK

REACTIONS (2)
  - DERMATITIS BULLOUS [None]
  - HYPERSENSITIVITY [None]
